FAERS Safety Report 8259719-7 (Version None)
Quarter: 2012Q2

REPORT INFORMATION
  Report Type: 
  Country: None (occurrence: None)
  Receive Date: 20120404
  Receipt Date: 20120326
  Transmission Date: 20120825
  Serious: Yes (Hospitalization)
  Sender: FDA-Public Use
  Company Number: US-JNJFOC-20120206963

PATIENT
  Sex: Female
  Weight: 54.89 kg

DRUGS (2)
  1. COGENTIN [Concomitant]
     Indication: MOVEMENT DISORDER
     Route: 048
     Dates: start: 20111019, end: 20120104
  2. INVEGA SUSTENNA [Suspect]
     Indication: SCHIZOPHRENIA
     Route: 030
     Dates: start: 20110420, end: 20120120

REACTIONS (1)
  - RHABDOMYOLYSIS [None]
